FAERS Safety Report 5910550-4 (Version None)
Quarter: 2008Q4

REPORT INFORMATION
  Report Type: 
  Country: None (occurrence: None)
  Receive Date: 20081007
  Receipt Date: 20080304
  Transmission Date: 20090506
  Serious: Yes (Other)
  Sender: FDA-Public Use
  Company Number: US-ASTRAZENECA-2008UW04739

PATIENT
  Age: 75 Year
  Sex: Female
  Weight: 62.1 kg

DRUGS (2)
  1. ARIMIDEX [Suspect]
     Route: 048
     Dates: start: 20020101, end: 20070101
  2. ATENOLOL [Concomitant]

REACTIONS (1)
  - METASTASES TO BONE [None]
